FAERS Safety Report 10428416 (Version 2)
Quarter: 2014Q3

REPORT INFORMATION
  Report Type: Report from Study
  Country: JP (occurrence: JP)
  Receive Date: 20140903
  Receipt Date: 20140903
  Transmission Date: 20150326
  Serious: Yes (Hospitalization)
  Sender: FDA-Public Use
  Company Number: JP-GLAXOSMITHKLINE-B0595584A

PATIENT
  Age: 49 Year
  Sex: Female
  Weight: 42 kg

DRUGS (8)
  1. XELODA [Suspect]
     Active Substance: CAPECITABINE
     Indication: BREAST CANCER
     Route: 048
     Dates: start: 20090925, end: 20100128
  2. ZOMETA [Concomitant]
     Active Substance: ZOLEDRONIC ACID
     Indication: NEOPLASM MALIGNANT
     Route: 042
     Dates: start: 20090401, end: 20100113
  3. DEPAKENE [Concomitant]
     Active Substance: VALPROIC ACID
     Indication: CONVULSION
     Route: 048
     Dates: start: 20090905, end: 20100829
  4. EXCEGRAN [Suspect]
     Active Substance: ZONISAMIDE
     Indication: CONVULSION
     Route: 048
     Dates: start: 20090806, end: 20090907
  5. XELODA [Suspect]
     Active Substance: CAPECITABINE
     Indication: BREAST CANCER
     Route: 048
     Dates: start: 20090827, end: 20090907
  6. TYKERB [Suspect]
     Active Substance: LAPATINIB DITOSYLATE
     Indication: BREAST CANCER
     Route: 048
     Dates: start: 20090925, end: 20100204
  7. TYKERB [Suspect]
     Active Substance: LAPATINIB DITOSYLATE
     Indication: BREAST CANCER
     Route: 048
     Dates: start: 20090827, end: 20090907
  8. PYDOXAL [Concomitant]
     Active Substance: PYRIDOXAL
     Indication: PROPHYLAXIS
     Route: 048
     Dates: start: 20090827, end: 20100128

REACTIONS (1)
  - Urticaria [Recovering/Resolving]

NARRATIVE: CASE EVENT DATE: 20090907
